FAERS Safety Report 20100432 (Version 1)
Quarter: 2021Q4

REPORT INFORMATION
  Report Type: Spontaneous
  Country: FR (occurrence: FR)
  Receive Date: 20211123
  Receipt Date: 20211123
  Transmission Date: 20220304
  Serious: Yes (Other)
  Sender: FDA-Public Use
  Company Number: FR-ABBVIE-21K-056-4122389-00

PATIENT
  Age: 73 Year
  Sex: Female
  Weight: 107 kg

DRUGS (4)
  1. VALPROATE SODIUM [Suspect]
     Active Substance: VALPROATE SODIUM
     Indication: Epilepsy
     Dosage: 1 MG/KG, QH
     Route: 042
     Dates: start: 20210823, end: 20210901
  2. VALPROATE SODIUM [Suspect]
     Active Substance: VALPROATE SODIUM
     Route: 048
     Dates: start: 20210901, end: 20210908
  3. VALPROATE SODIUM [Suspect]
     Active Substance: VALPROATE SODIUM
     Route: 048
     Dates: start: 20210908, end: 20210918
  4. TAMSULOSIN HYDROCHLORIDE [Suspect]
     Active Substance: TAMSULOSIN HYDROCHLORIDE
     Indication: Dysuria
     Route: 048
     Dates: start: 20210826, end: 20210908

REACTIONS (3)
  - Bicytopenia [Recovered/Resolved]
  - Product use in unapproved indication [Unknown]
  - Product use issue [Unknown]

NARRATIVE: CASE EVENT DATE: 20210829
